FAERS Safety Report 10592692 (Version 1)
Quarter: 2014Q4

REPORT INFORMATION
  Report Type: Spontaneous
  Country: US (occurrence: US)
  Receive Date: 20141119
  Receipt Date: 20141119
  Transmission Date: 20150529
  Serious: Yes (Disabling, Other)
  Sender: FDA-Public Use
  Company Number: US-009507513-1411USA005239

PATIENT
  Sex: Male

DRUGS (7)
  1. CARVEDILOL. [Suspect]
     Active Substance: CARVEDILOL
  2. FENOFIBRATE. [Suspect]
     Active Substance: FENOFIBRATE
  3. TRUVADA [Suspect]
     Active Substance: EMTRICITABINE\TENOFOVIR DISOPROXIL FUMARATE
  4. ISENTRESS [Suspect]
     Active Substance: RALTEGRAVIR POTASSIUM
     Dosage: 400 (UNITS NOT PROVIDED)
     Route: 048
  5. PRINIVIL [Suspect]
     Active Substance: LISINOPRIL
     Dosage: 20 (UNITS NOT REPORTED)
     Route: 048
  6. PREZISTA [Suspect]
     Active Substance: DARUNAVIR ETHANOLATE
     Dosage: 600 (UNITS NOT REPORTED)
  7. NORVIR [Suspect]
     Active Substance: RITONAVIR
     Dosage: DOSE DESCRIPTION: 100 (UNITS NOT REPORTED)

REACTIONS (5)
  - Cardiac failure congestive [Unknown]
  - Cardiac disorder [Unknown]
  - Cardiac pacemaker battery replacement [Unknown]
  - Staphylococcal infection [Unknown]
  - Myocardial infarction [Unknown]

NARRATIVE: CASE EVENT DATE: 2013
